FAERS Safety Report 19070200 (Version 1)
Quarter: 2021Q1

REPORT INFORMATION
  Report Type: Spontaneous
  Country: IT (occurrence: IT)
  Receive Date: 20210329
  Receipt Date: 20210329
  Transmission Date: 20210420
  Serious: Yes (Other)
  Sender: FDA-Public Use
  Company Number: IT-FRESENIUS KABI-FK202103200

PATIENT
  Age: 47 Year
  Sex: Female

DRUGS (4)
  1. TIGECYCLINE. [Concomitant]
     Active Substance: TIGECYCLINE
     Indication: KLEBSIELLA INFECTION
     Route: 065
  2. CEFTAZIDIME/AVIBACTAM [Concomitant]
     Active Substance: AVIBACTAM SODIUM\CEFTAZIDIME
     Indication: KLEBSIELLA INFECTION
     Route: 065
  3. AMIKACIN. [Concomitant]
     Active Substance: AMIKACIN
     Indication: KLEBSIELLA INFECTION
     Route: 065
  4. AZTREONAM FOR INJECTION (MANUFACTURER UNKNOWN) [Suspect]
     Active Substance: AZTREONAM
     Indication: KLEBSIELLA INFECTION
     Route: 065

REACTIONS (2)
  - Vitamin K deficiency [Recovered/Resolved]
  - Coagulopathy [Recovered/Resolved]
